FAERS Safety Report 9113113 (Version 3)
Quarter: 2013Q2

REPORT INFORMATION
  Report Type: Spontaneous
  Country: RU (occurrence: RU)
  Receive Date: 20130211
  Receipt Date: 20130509
  Transmission Date: 20140414
  Serious: Yes (Death, Other)
  Sender: FDA-Public Use
  Company Number: RU-ABBOTT-13P-251-1046470-00

PATIENT
  Age: 59 Year
  Sex: Male

DRUGS (21)
  1. SEVORANE [Suspect]
     Indication: INDUCTION OF ANAESTHESIA
     Dosage: TIDAL VOL 670MG. MIN VOL 8L 58%O2, 44%AIR 0.6-1.1%
     Dates: start: 20110124, end: 20110124
  2. SEVORANE [Suspect]
     Indication: MAINTENANCE OF ANAESTHESIA
  3. PROPOFOL [Concomitant]
     Indication: INDUCTION OF ANAESTHESIA
     Route: 042
     Dates: start: 20110124, end: 20110124
  4. PHENTANYL [Concomitant]
     Indication: ANALGESIC THERAPY
     Dosage: TOTAL DAILY DOSE:  23 AMPUOLES OF 0.1
     Route: 042
     Dates: start: 20110124, end: 20110124
  5. ATROPINE [Concomitant]
     Indication: PREMEDICATION
     Route: 042
     Dates: start: 20110124, end: 20110124
  6. SEDUKSEN [Concomitant]
     Indication: PREMEDICATION
     Route: 042
     Dates: start: 20110124, end: 20110124
  7. DEXCON [Concomitant]
     Indication: PREMEDICATION
     Route: 042
     Dates: start: 20110124, end: 20110124
  8. ARDUAN [Concomitant]
     Indication: HYPOTONIA
     Route: 042
     Dates: start: 20110124, end: 20110124
  9. CLOPHELINI [Concomitant]
     Indication: INTRAOPERATIVE CARE
     Dosage: TOTAL DAILY DOSE:  0.1 X 0.3 MG
     Route: 042
     Dates: start: 20110124, end: 20110124
  10. DOFAMINE [Concomitant]
     Indication: INTRAOPERATIVE CARE
     Dosage: TOTAL DAILY DOSE:  2ML/20 NACL
     Route: 042
     Dates: start: 20110124, end: 20110124
  11. NIMOTEN [Concomitant]
     Indication: PROPHYLAXIS
     Dates: start: 20110124, end: 20110124
  12. ETAMSYLATE [Concomitant]
     Indication: PROPHYLAXIS
     Dates: start: 20110124
  13. QUEMATEL [Concomitant]
     Indication: PROPHYLAXIS
     Dates: start: 20110124, end: 20110124
  14. DEXASON [Concomitant]
     Indication: PROPHYLAXIS
     Dates: start: 20110124, end: 20110124
  15. KETONAL [Concomitant]
     Indication: PROPHYLAXIS
  16. BLOOD AND RELATED PRODUCTS [Concomitant]
     Indication: PRODUCT USED FOR UNKNOWN INDICATION
  17. HEPTRAL [Concomitant]
     Indication: LIVER DISORDER
  18. CEFTRIAXONE [Concomitant]
     Indication: PROPHYLAXIS
  19. CERUCAL [Concomitant]
     Indication: PRODUCT USED FOR UNKNOWN INDICATION
  20. CALCIUM CHLORIDE [Concomitant]
     Indication: PRODUCT USED FOR UNKNOWN INDICATION
  21. MARIN [Concomitant]
     Indication: PRODUCT USED FOR UNKNOWN INDICATION

REACTIONS (15)
  - Hepatitis acute [Fatal]
  - Hepatitis toxic [Fatal]
  - Hemiparesis [Unknown]
  - Gastrointestinal haemorrhage [Unknown]
  - Catabolic state [Unknown]
  - Dyspnoea [Unknown]
  - Haemorrhagic disorder [Unknown]
  - Haemoglobin decreased [Unknown]
  - Eyelid ptosis [Unknown]
  - Brain injury [Unknown]
  - Protein total decreased [Unknown]
  - Oxygen saturation decreased [Unknown]
  - Tachypnoea [Unknown]
  - Rash [Unknown]
  - Hepatorenal failure [Unknown]
